FAERS Safety Report 19814672 (Version 1)
Quarter: 2021Q3

REPORT INFORMATION
  Report Type: Spontaneous
  Country: PL (occurrence: PL)
  Receive Date: 20210909
  Receipt Date: 20210909
  Transmission Date: 20211014
  Serious: Yes (Other)
  Sender: FDA-Public Use
  Company Number: PL-MYLANLABS-2021M1058908

PATIENT
  Age: 21 Year
  Sex: Male

DRUGS (4)
  1. TAFINLAR [Suspect]
     Active Substance: DABRAFENIB MESYLATE
     Dosage: 150 MILLIGRAM, QD, 75 MG, BID (2X75MG/DAILY)
     Route: 065
     Dates: start: 20190108
  2. TAFINLAR [Suspect]
     Active Substance: DABRAFENIB MESYLATE
     Indication: MALIGNANT MELANOMA
     Dosage: 300 MILLIGRAM, QD, 150 MG, BID (2X150MG/DAILY)
     Route: 065
     Dates: start: 20181211, end: 20190213
  3. PREGABALIN. [Suspect]
     Active Substance: PREGABALIN
     Indication: PRODUCT USED FOR UNKNOWN INDICATION
     Dosage: UNK
     Route: 065
  4. MEKINIST [Suspect]
     Active Substance: TRAMETINIB DIMETHYL SULFOXIDE
     Indication: MALIGNANT MELANOMA
     Dosage: 4 MILLIGRAM, QD, 2 MG, BID (1X2MG/DAILY)
     Route: 065
     Dates: start: 20181211, end: 20190213

REACTIONS (14)
  - Abdominal pain upper [Recovered/Resolved]
  - Cough [Unknown]
  - Pain in extremity [Unknown]
  - Abdominal rigidity [Recovered/Resolved]
  - Peritoneal disorder [Recovered/Resolved]
  - Hyperhidrosis [Recovered/Resolved]
  - Asthenia [Unknown]
  - Chills [Recovered/Resolved]
  - Nausea [Recovered/Resolved]
  - Abdominal tenderness [Recovered/Resolved]
  - Pyrexia [Unknown]
  - Pallor [Recovered/Resolved]
  - Melanoma recurrent [Unknown]
  - Vomiting [Recovered/Resolved]

NARRATIVE: CASE EVENT DATE: 20181215
